FAERS Safety Report 22309204 (Version 4)
Quarter: 2023Q4

REPORT INFORMATION
  Report Type: Spontaneous
  Country: US (occurrence: US)
  Receive Date: 20230511
  Receipt Date: 20231030
  Transmission Date: 20240109
  Serious: Yes (Other)
  Sender: FDA-Public Use
  Company Number: US-SA-SAC20230510001251

PATIENT
  Age: 39 Year
  Sex: Male

DRUGS (6)
  1. ELOCTATE [Suspect]
     Active Substance: EFMOROCTOCOG ALFA
     Indication: Factor VIII deficiency
     Dosage: 10000 U, BIW
     Route: 042
     Dates: start: 202012
  2. ELOCTATE [Suspect]
     Active Substance: EFMOROCTOCOG ALFA
     Indication: Factor VIII deficiency
     Dosage: 10000 U, BIW
     Route: 042
     Dates: start: 202012
  3. ELOCTATE [Suspect]
     Active Substance: EFMOROCTOCOG ALFA
     Dosage: 10000 UNITS (9500-10500) TWICE WEEKLY AND PRN
     Route: 042
     Dates: start: 20230517
  4. ELOCTATE [Suspect]
     Active Substance: EFMOROCTOCOG ALFA
     Dosage: 10000 UNITS (9500-10500) TWICE WEEKLY AND PRN
     Route: 042
     Dates: start: 20230517
  5. ELOCTATE [Suspect]
     Active Substance: EFMOROCTOCOG ALFA
     Dosage: 10000 UNITS (9500-10500) TWICE WEEKLY AND PRN
     Route: 042
     Dates: start: 20230517
  6. ELOCTATE [Suspect]
     Active Substance: EFMOROCTOCOG ALFA
     Dosage: 10000 UNITS (9500-10500) TWICE WEEKLY AND PRN
     Route: 042
     Dates: start: 20230517

REACTIONS (4)
  - Haemorrhage [Unknown]
  - Haemorrhage [Not Recovered/Not Resolved]
  - Haemorrhage [Not Recovered/Not Resolved]
  - Haemorrhage [Not Recovered/Not Resolved]

NARRATIVE: CASE EVENT DATE: 20231026
